FAERS Safety Report 23847258 (Version 3)
Quarter: 2024Q2

REPORT INFORMATION
  Report Type: Report from Study
  Country: US (occurrence: US)
  Receive Date: 20240513
  Receipt Date: 20240614
  Transmission Date: 20240716
  Serious: Yes (Other)
  Sender: FDA-Public Use
  Company Number: US-ABBVIE-5753725

PATIENT
  Sex: Female

DRUGS (3)
  1. SKYRIZI [Suspect]
     Active Substance: RISANKIZUMAB-RZAA
     Indication: Psoriasis
     Route: 058
  2. FULPHILA [Concomitant]
     Active Substance: PEGFILGRASTIM-JMDB
     Indication: Product used for unknown indication
  3. VITAMIN B12 [Concomitant]
     Active Substance: CYANOCOBALAMIN
     Indication: Product used for unknown indication
     Dates: start: 2024

REACTIONS (8)
  - Neoplasm malignant [Unknown]
  - Vitamin D deficiency [Unknown]
  - Thyroid disorder [Unknown]
  - Stress [Unknown]
  - Rhinitis allergic [Unknown]
  - Unevaluable event [Unknown]
  - Fear [Unknown]
  - Illness [Unknown]

NARRATIVE: CASE EVENT DATE: 20240101
